FAERS Safety Report 9580134 (Version 1)
Quarter: 2013Q3

REPORT INFORMATION
  Report Type: Spontaneous
  Country: US (occurrence: None)
  Receive Date: 20130916
  Receipt Date: 20130916
  Transmission Date: 20140515
  Serious: Yes (Other)
  Sender: FDA-Public Use
  Company Number: JPI-P-030171

PATIENT
  Age: 40 Year
  Sex: Female
  Weight: 68.04 kg

DRUGS (5)
  1. XYREM [Suspect]
     Indication: CATAPLEXY
     Route: 048
     Dates: start: 20130202, end: 2013
  2. LATUDA [Suspect]
     Dates: start: 201302, end: 20130301
  3. NEURONTIN (GABAPENTIN) [Concomitant]
  4. XANAX (ALPRAZOLAM) [Concomitant]
  5. LAMOTRIGINE [Concomitant]

REACTIONS (6)
  - Depression [None]
  - Crying [None]
  - Rash [None]
  - Insomnia [None]
  - Anxiety [None]
  - Condition aggravated [None]
